FAERS Safety Report 8140109-2 (Version None)
Quarter: 2012Q1

REPORT INFORMATION
  Report Type: 
  Country: None (occurrence: None)
  Receive Date: 20120216
  Receipt Date: 20120206
  Transmission Date: 20120608
  Serious: Yes (Other)
  Sender: FDA-Public Use
  Company Number: GB-AMGEN-GBRSP2012008878

PATIENT
  Age: 63 Year
  Sex: Female

DRUGS (1)
  1. ENBREL [Suspect]
     Indication: RHEUMATOID ARTHRITIS
     Dosage: 50 MG, WEEKLY
     Route: 058
     Dates: start: 20090601

REACTIONS (4)
  - NASOPHARYNGITIS [None]
  - OROPHARYNGEAL PAIN [None]
  - ESCHERICHIA TEST POSITIVE [None]
  - BLOOD URINE PRESENT [None]
